FAERS Safety Report 8008939-5 (Version None)
Quarter: 2011Q4

REPORT INFORMATION
  Report Type: 
  Country: None (occurrence: None)
  Receive Date: 20111221
  Receipt Date: 20111215
  Transmission Date: 20120403
  Serious: Yes (Hospitalization)
  Sender: FDA-Public Use
  Company Number: 1000025558

PATIENT
  Age: 41 Year
  Sex: Female

DRUGS (5)
  1. ABILIFY (ARIPIPRAZOLE) (ARIPIPRAZOLE) [Concomitant]
  2. VIIBRYD [Suspect]
     Dosage: 40 MG (40 MG, 1 IN 1 D), ORAL
     Route: 048
     Dates: start: 20110811, end: 20110915
  3. LAMICTAL [Concomitant]
  4. VIIBRYD [Suspect]
     Dosage: 10 MG (10 MG, 1 IN 1 D), ORAL
     Route: 048
     Dates: start: 20110728, end: 20110803
  5. AMBIEN [Concomitant]

REACTIONS (2)
  - DEPRESSION [None]
  - HYPOMANIA [None]
